FAERS Safety Report 7398854 (Version 2)
Quarter: 2013Q2

REPORT INFORMATION
  Report Type: Spontaneous
  Country: US (occurrence: US)
  Receive Date: 20100525
  Receipt Date: 20130425
  Transmission Date: 20140414
  Serious: Yes (Hospitalization)
  Sender: FDA-Public Use
  Company Number: US-BAYER-201022981NA

PATIENT
  Age: 34 Year
  Sex: Female

DRUGS (5)
  1. YASMIN [Suspect]
     Indication: CONTRACEPTION
     Route: 048
     Dates: start: 2003
  2. LEXAPRO [Concomitant]
  3. TYLENOL [Concomitant]
  4. XANAX [Concomitant]
  5. MULTIVITAMIN [Concomitant]

REACTIONS (1)
  - Deep vein thrombosis [None]
